FAERS Safety Report 4783936-1 (Version None)
Quarter: 2005Q3

REPORT INFORMATION
  Report Type: 
  Country: None (occurrence: None)
  Receive Date: 20050928
  Receipt Date: 20050916
  Transmission Date: 20060218
  Serious: Yes (Hospitalization)
  Sender: FDA-Public Use
  Company Number: 2005-132619-NL

PATIENT
  Age: 19 Year
  Sex: Female

DRUGS (2)
  1. NUVARING [Suspect]
     Dosage: DF
  2. BETABLOCKER [Concomitant]

REACTIONS (14)
  - ABASIA [None]
  - AORTIC VALVE DISEASE [None]
  - AORTIC VALVE INCOMPETENCE [None]
  - CARDIAC VALVE VEGETATION [None]
  - CEREBRAL INFARCTION [None]
  - DISEASE RECURRENCE [None]
  - INTRACARDIAC THROMBUS [None]
  - NAUSEA [None]
  - PAIN [None]
  - TONSILLITIS [None]
  - VERTEBRAL ARTERY OCCLUSION [None]
  - VERTIGO [None]
  - VOMITING [None]
  - WALLENBERG SYNDROME [None]
